FAERS Safety Report 19906462 (Version 2)
Quarter: 2021Q4

REPORT INFORMATION
  Report Type: Spontaneous
  Country: US (occurrence: US)
  Receive Date: 20211001
  Receipt Date: 20211005
  Transmission Date: 20220303
  Serious: Yes (Other)
  Sender: FDA-Public Use
  Company Number: US-BIOVITRUM-2021US8630

PATIENT
  Sex: Female
  Weight: 4 kg

DRUGS (11)
  1. SYNAGIS [Suspect]
     Active Substance: PALIVIZUMAB
     Indication: Premature baby
     Dosage: 100MG/1ML VL LIQUID
     Route: 030
  2. LACTULOSE [Concomitant]
     Active Substance: LACTULOSE
  3. VITAMINS [Concomitant]
     Active Substance: VITAMINS
  4. POLYETHYLENE GLYCOLS [Concomitant]
     Active Substance: POLYETHYLENE GLYCOLS
  5. ACETAMINOPHEN\OXYCODONE HYDROCHLORIDE [Concomitant]
     Active Substance: ACETAMINOPHEN\OXYCODONE HYDROCHLORIDE
  6. SYNAGIS [Suspect]
     Active Substance: PALIVIZUMAB
     Indication: Low birth weight baby
  7. FAMOTIDINE [Concomitant]
     Active Substance: FAMOTIDINE
  8. AMOXICILLIN [Concomitant]
     Active Substance: AMOXICILLIN
  9. PROMETHAZINE HYDROCHLORIDE [Concomitant]
     Active Substance: PROMETHAZINE HYDROCHLORIDE
  10. ALBUTEROL SULFATE [Concomitant]
     Active Substance: ALBUTEROL SULFATE
  11. PEPCID [Concomitant]
     Active Substance: FAMOTIDINE

REACTIONS (6)
  - Cerebral haemorrhage [Unknown]
  - Periventricular leukomalacia [Unknown]
  - Dyspepsia [Unknown]
  - Rhinorrhoea [Unknown]
  - Cough [Unknown]
  - Lung disorder [Unknown]
